FAERS Safety Report 4437959-2 (Version None)
Quarter: 2004Q3

REPORT INFORMATION
  Report Type: 
  Country: None (occurrence: None)
  Receive Date: 20040831
  Receipt Date: 20040823
  Transmission Date: 20050211
  Serious: Yes (Hospitalization)
  Sender: FDA-Public Use
  Company Number: FR-GLAXOSMITHKLINE-B0343338A

PATIENT
  Age: 70 Year
  Sex: Female

DRUGS (2)
  1. ZANTAC [Suspect]
     Indication: POSTOPERATIVE CARE
     Route: 042
     Dates: start: 20040716, end: 20040720
  2. DOPAMINE HCL [Suspect]
     Indication: POSTOPERATIVE CARE
     Route: 042
     Dates: start: 20040716, end: 20040724

REACTIONS (2)
  - BRADYCARDIA [None]
  - SINOATRIAL BLOCK [None]
